FAERS Safety Report 5750756-0 (Version None)
Quarter: 2008Q2

REPORT INFORMATION
  Report Type: 
  Country: None (occurrence: None)
  Receive Date: 20080528
  Receipt Date: 20080508
  Transmission Date: 20081010
  Serious: No
  Sender: FDA-Public Use
  Company Number: US-BAYER-200822733NA

PATIENT
  Age: 48 Year
  Sex: Female
  Weight: 57 kg

DRUGS (2)
  1. MAGNEVIST [Suspect]
     Indication: NUCLEAR MAGNETIC RESONANCE IMAGING
     Dosage: TOTAL DAILY DOSE: 12 ML  UNIT DOSE: 100 ML
     Route: 042
     Dates: start: 20080507, end: 20080507
  2. PREDNISONE TAB [Concomitant]
     Indication: PROPHYLAXIS
     Dosage: AS USED: 120 ML
     Dates: start: 20080507, end: 20080507

REACTIONS (3)
  - EAR PRURITUS [None]
  - NAUSEA [None]
  - THROAT IRRITATION [None]
